FAERS Safety Report 5626141-9 (Version None)
Quarter: 2008Q1

REPORT INFORMATION
  Report Type: 
  Country: None (occurrence: None)
  Receive Date: 20080214
  Receipt Date: 20080131
  Transmission Date: 20080703
  Serious: Yes (Hospitalization)
  Sender: FDA-Public Use
  Company Number: FR-GENENTECH-255609

PATIENT
  Sex: Male

DRUGS (6)
  1. BEVACIZUMAB [Suspect]
     Indication: COLON CANCER METASTATIC
     Dates: start: 20070619, end: 20070926
  2. ELVORINE [Suspect]
     Indication: COLON CANCER METASTATIC
     Dosage: 350 MG, UNK
     Route: 042
     Dates: start: 20070619, end: 20070904
  3. FLUOROURACIL [Suspect]
     Indication: COLON CANCER METASTATIC
     Dosage: 4100 MG, UNK
     Route: 042
     Dates: start: 20070619, end: 20070904
  4. OXALIPLATIN [Suspect]
     Indication: COLON CANCER METASTATIC
     Dosage: 170 MG, UNK
     Route: 042
     Dates: start: 20070619, end: 20070904
  5. RENITEC 20 [Concomitant]
     Indication: DRUG USE FOR UNKNOWN INDICATION
  6. CARVEDILOL [Concomitant]
     Indication: DRUG USE FOR UNKNOWN INDICATION

REACTIONS (3)
  - COUGH [None]
  - DYSPNOEA [None]
  - INTERSTITIAL LUNG DISEASE [None]
